FAERS Safety Report 7384190-7 (Version None)
Quarter: 2011Q1

REPORT INFORMATION
  Report Type: 
  Country: None (occurrence: None)
  Receive Date: 20110330
  Receipt Date: 20110323
  Transmission Date: 20110831
  Serious: Yes (Hospitalization)
  Sender: FDA-Public Use
  Company Number: B0709266A

PATIENT
  Sex: Male

DRUGS (1)
  1. AUGMENTIN [Suspect]
     Indication: OTITIS MEDIA ACUTE
     Dosage: 9ML PER DAY
     Route: 048
     Dates: start: 20110310, end: 20110319

REACTIONS (5)
  - ERYTHEMA [None]
  - FEELING HOT [None]
  - URTICARIA [None]
  - OEDEMA PERIPHERAL [None]
  - VASCULITIS [None]
